FAERS Safety Report 8489086-5 (Version None)
Quarter: 2012Q3

REPORT INFORMATION
  Report Type: 
  Country: None (occurrence: None)
  Receive Date: 20120705
  Receipt Date: 20120628
  Transmission Date: 20120928
  Serious: Yes (Other)
  Sender: FDA-Public Use
  Company Number: US-BAYER-200836292NA

PATIENT
  Age: 61 Year
  Sex: Male
  Weight: 78 kg

DRUGS (28)
  1. TRASYLOL [Suspect]
     Dosage: 200 ML, ONCE, PRIME
     Route: 042
     Dates: start: 20050929, end: 20050929
  2. CALCIUM CHLORIDE [Concomitant]
     Dosage: 1 G, UNK
     Route: 042
  3. ASPIRIN [Concomitant]
     Dosage: 325 MG, QD
     Route: 048
  4. CLOPIDOGREL [Concomitant]
     Dosage: 75 MG, QD
     Route: 048
  5. LISINOPRIL [Concomitant]
     Dosage: 10 MG, QD
     Route: 048
  6. HEPARIN [Concomitant]
     Dosage: 1000 UNITS/500ML, FLUSH
     Route: 042
  7. HEPARIN [Concomitant]
     Dosage: 4 ML, 10000UNITS/ML, CELL SAVER
  8. TRASYLOL [Suspect]
     Dosage: 100 ML, ONCE, LOADING DOSE
     Route: 042
     Dates: start: 20050929, end: 20050929
  9. MIDAZOLAM [Concomitant]
     Route: 042
  10. SUFENTANIL CITRATE [Concomitant]
     Dosage: 2.5/HR, UNK
     Route: 042
  11. OMEPRAZOLE [Concomitant]
     Dosage: 20 MG, QD
     Route: 048
  12. NITROGLYCERIN [Concomitant]
     Dosage: 1/150 UNK, PRN
     Route: 060
  13. ZINACEF [Concomitant]
     Dosage: 1.5 G, UNK
     Route: 042
     Dates: start: 20050929
  14. SOLU-MEDROL [Concomitant]
     Dosage: 1 G, UNK
     Route: 042
  15. INSULIN [Concomitant]
     Dosage: 20 U, UNK
     Route: 042
  16. MAGNESIUM SULFATE [Concomitant]
     Route: 042
  17. BENADRYL [Concomitant]
     Dosage: 60 MG, UNK
     Route: 042
  18. NEOSTIGMINE [Concomitant]
     Dosage: 0.5MG/ML, UNK
     Route: 042
  19. TRASYLOL [Suspect]
     Indication: CORONARY ARTERY BYPASS
     Dosage: 1 ML, ONCE, TEST DOSE
     Route: 042
     Dates: start: 20050929, end: 20050929
  20. VERAPAMIL [Concomitant]
     Dosage: 240 MG, BID
     Route: 048
  21. HEPARIN [Concomitant]
     Dosage: 5000UNITS/500ML
     Route: 042
  22. PROTAMINE SULFATE [Concomitant]
     Dosage: 250MG/25ML, UNK
     Route: 042
  23. PAPAVERINE [Concomitant]
     Dosage: 150MG/50ML, UNK
     Route: 042
  24. TRASYLOL [Suspect]
     Dosage: 50 ML, Q1HR
     Route: 042
     Dates: start: 20050929, end: 20050929
  25. RED BLOOD CELLS [Concomitant]
  26. OMNIPAQUE 140 [Concomitant]
     Dosage: 250 ML, UNK
  27. SERTRALINE HYDROCHLORIDE [Concomitant]
     Dosage: 100 MG, QD
     Route: 048
  28. SIMVASTATIN [Concomitant]
     Dosage: 20 MG, UNK
     Route: 048

REACTIONS (13)
  - MULTI-ORGAN FAILURE [None]
  - PAIN [None]
  - PSYCHOLOGICAL TRAUMA [None]
  - RENAL IMPAIRMENT [None]
  - STRESS [None]
  - POST-TRAUMATIC STRESS DISORDER [None]
  - ANXIETY [None]
  - UNEVALUABLE EVENT [None]
  - RENAL FAILURE [None]
  - RENAL INJURY [None]
  - EMOTIONAL DISTRESS [None]
  - FEAR [None]
  - DEPRESSION [None]
